FAERS Safety Report 9218635 (Version 1)
Quarter: 2013Q1

REPORT INFORMATION
  Report Type: Spontaneous
  Country: US (occurrence: None)
  Receive Date: 20120827
  Receipt Date: 20120827
  Transmission Date: 20140127
  Serious: No
  Sender: FDA-Public Use
  Company Number: 354473

PATIENT
  Age: 57 Year
  Sex: Male

DRUGS (3)
  1. VICTOZA (LIRAGLUTIDE) SOLUTION FOR INJECTION, 6MG.ML [Suspect]
     Indication: TYPE 2 DIABETES MELLITUS
     Dosage: UNK, SUBCUTANEOUS
     Route: 058
     Dates: start: 20120621
  2. HUMALOG (INSULIN LISPRO) [Concomitant]
  3. HUMALIN (INSULIN) [Concomitant]

REACTIONS (1)
  - Blood glucose decreased [None]
